FAERS Safety Report 4305120-8 (Version None)
Quarter: 2004Q1

REPORT INFORMATION
  Report Type: 
  Country: None (occurrence: None)
  Receive Date: 20040225
  Receipt Date: 20040225
  Transmission Date: 20041129
  Serious: Yes (Life-Threatening, Hospitalization)
  Sender: FDA-Public Use
  Company Number: None

PATIENT
  Age: 62 Year
  Sex: Male

DRUGS (15)
  1. NAFCILLIN SODIUM [Suspect]
     Indication: INFECTION
     Dosage: 2 GM IV Q 4 HR
     Route: 042
     Dates: start: 20031028, end: 20031102
  2. ALBUTEROL [Concomitant]
  3. DOCUSATE [Concomitant]
  4. ENALAPRIL MALEATE [Concomitant]
  5. HEPARIN [Concomitant]
  6. HYDROCHLOROTHIAZIDE [Concomitant]
  7. LANZOPRAZOLE [Concomitant]
  8. LEVOFLOXACIN [Concomitant]
  9. LIDOCAINE [Concomitant]
  10. LORATADINE [Concomitant]
  11. MIDAZOLAM HCL [Concomitant]
  12. MORPHINE [Concomitant]
  13. NYSTATIN [Concomitant]
  14. OXYCODONE HCL [Concomitant]
  15. SENNA [Concomitant]

REACTIONS (3)
  - BLOOD CREATININE INCREASED [None]
  - BLOOD UREA INCREASED [None]
  - RENAL IMPAIRMENT [None]
